FAERS Safety Report 23339668 (Version 1)
Quarter: 2023Q4

REPORT INFORMATION
  Report Type: Report from Study
  Country: FR (occurrence: FR)
  Receive Date: 20231226
  Receipt Date: 20231226
  Transmission Date: 20240109
  Serious: No
  Sender: FDA-Public Use
  Company Number: FR-002147023-NVSC2023FR100505

PATIENT
  Age: 11 Year
  Sex: Female

DRUGS (1)
  1. OMNITROPE [Suspect]
     Active Substance: SOMATROPIN
     Indication: Product used for unknown indication
     Dosage: 1.3 MG, QD (AROUND 07 APR 2023)
     Route: 042
     Dates: start: 202304

REACTIONS (7)
  - Contusion [Unknown]
  - Injection site pain [Unknown]
  - Device mechanical issue [Unknown]
  - Inadequate aseptic technique in use of product [Unknown]
  - Wrong technique in product usage process [Unknown]
  - Lack of injection site rotation [Unknown]
  - Wrong technique in device usage process [Unknown]
